FAERS Safety Report 5478113-5 (Version None)
Quarter: 2007Q4

REPORT INFORMATION
  Report Type: 
  Country: None (occurrence: None)
  Receive Date: 20071005
  Receipt Date: 20070926
  Transmission Date: 20080405
  Serious: Yes (Hospitalization, Other)
  Sender: FDA-Public Use
  Company Number: BR-JNJFOC-20071000268

PATIENT
  Age: 5 Year
  Sex: Male
  Weight: 20 kg

DRUGS (1)
  1. TOPAMAX [Suspect]
     Indication: ACCIDENTAL EXPOSURE
     Route: 048

REACTIONS (7)
  - ACCIDENTAL DRUG INTAKE BY CHILD [None]
  - AGITATION [None]
  - CONFUSIONAL STATE [None]
  - CYANOSIS [None]
  - DISTURBANCE IN ATTENTION [None]
  - SOPOR [None]
  - TREMOR [None]
